FAERS Safety Report 14667004 (Version 1)
Quarter: 2018Q1

REPORT INFORMATION
  Report Type: Spontaneous
  Country: ES (occurrence: ES)
  Receive Date: 20180322
  Receipt Date: 20180322
  Transmission Date: 20180509
  Serious: Yes (Other)
  Sender: FDA-Public Use
  Company Number: ES-CIPLA LTD.-2018ES11877

PATIENT

DRUGS (1)
  1. IRINOTECAN [Suspect]
     Active Substance: IRINOTECAN
     Indication: COLON NEOPLASM
     Dosage: 270 MG, (180 MG/M2)
     Route: 041
     Dates: start: 20180104, end: 20180104

REACTIONS (3)
  - Sensation of foreign body [Recovered/Resolved]
  - Dyskinesia [Recovered/Resolved]
  - Dyslalia [Recovered/Resolved]

NARRATIVE: CASE EVENT DATE: 20180104
